FAERS Safety Report 5741007-1 (Version None)
Quarter: 2008Q2

REPORT INFORMATION
  Report Type: 
  Country: None (occurrence: None)
  Receive Date: 20080513
  Receipt Date: 20080429
  Transmission Date: 20081010
  Serious: Yes (Death, Hospitalization)
  Sender: FDA-Public Use
  Company Number: WAES 0805USA00090

PATIENT
  Age: 53 Year
  Sex: Male

DRUGS (12)
  1. INDOCIN [Suspect]
     Indication: BACK PAIN
     Dosage: 100 MG/BID RECT
     Route: 054
  2. TENOFOVIR [Suspect]
  3. DIDANOSINE [Suspect]
     Dosage: 250 MG
  4. ASPIRIN [Concomitant]
  5. ATAZANAVIR SULFATE [Concomitant]
  6. LORAZEPAM [Concomitant]
  7. PROPRANOLOL HCL [Concomitant]
  8. RANITIDINE [Concomitant]
  9. RITONAVIR [Concomitant]
  10. SERTRALINE HCL [Concomitant]
  11. SULFAMETHOXAZOLE AND TRIMETHOPRIM [Concomitant]
  12. TEMAZEPAM [Concomitant]

REACTIONS (8)
  - BLOOD PHOSPHORUS INCREASED [None]
  - BLOOD POTASSIUM INCREASED [None]
  - DIALYSIS [None]
  - GENERAL PHYSICAL HEALTH DETERIORATION [None]
  - GLUCOSE URINE PRESENT [None]
  - PROTEINURIA [None]
  - RENAL FAILURE ACUTE [None]
  - RENAL TUBULAR NECROSIS [None]
